FAERS Safety Report 6447651-0 (Version None)
Quarter: 2009Q4

REPORT INFORMATION
  Report Type: 
  Country: None (occurrence: None)
  Receive Date: 20091120
  Receipt Date: 20091109
  Transmission Date: 20100525
  Serious: Yes (Hospitalization)
  Sender: FDA-Public Use
  Company Number: US-RANBAXY-2009RR-29213

PATIENT
  Age: 56 Year
  Sex: Male

DRUGS (3)
  1. CIPROFLOXACIN [Suspect]
     Indication: RESPIRATORY TRACT INFECTION
     Dosage: 400 MG, BID
  2. METHADONE HCL [Suspect]
     Dosage: 120 MG, UNK
     Route: 048
  3. BUPRENORPHINE [Concomitant]

REACTIONS (2)
  - DRUG INTERACTION [None]
  - TORSADE DE POINTES [None]
